FAERS Safety Report 6834461-5 (Version None)
Quarter: 2010Q3

REPORT INFORMATION
  Report Type: 
  Country: None (occurrence: None)
  Receive Date: 20100712
  Receipt Date: 20070416
  Transmission Date: 20110219
  Serious: No
  Sender: FDA-Public Use
  Company Number: US-PFIZER INC-2007031619

PATIENT
  Sex: Female
  Weight: 83.91 kg

DRUGS (1)
  1. CHANTIX [Suspect]
     Indication: EX-TOBACCO USER
     Dates: start: 20070101, end: 20070401

REACTIONS (3)
  - BACK PAIN [None]
  - CHEST PAIN [None]
  - MEDICATION ERROR [None]
